FAERS Safety Report 6143859-2 (Version None)
Quarter: 2009Q2

REPORT INFORMATION
  Report Type: 
  Country: None (occurrence: None)
  Receive Date: 20090403
  Receipt Date: 20090319
  Transmission Date: 20091009
  Serious: Yes (Hospitalization)
  Sender: FDA-Public Use
  Company Number: CA-GENENTECH-280092

PATIENT
  Sex: Female

DRUGS (12)
  1. BEVACIZUMAB [Suspect]
     Indication: COLORECTAL CANCER
     Dosage: 457 MG, Q2W
     Route: 042
     Dates: start: 20081008
  2. CAPECITABINE [Suspect]
     Indication: COLORECTAL CANCER
     Dosage: 1800 MG, BID
     Route: 048
     Dates: start: 20081022
  3. OXALIPLATIN [Suspect]
     Indication: COLORECTAL CANCER
     Dosage: 105 MG, 4/MONTH
     Route: 042
     Dates: start: 20081022
  4. FLUOROURACIL [Suspect]
     Indication: COLORECTAL CANCER
     Dosage: 2800 MG, UNK
     Route: 042
     Dates: start: 20081112
  5. LANTUS [Concomitant]
     Indication: DRUG USE FOR UNKNOWN INDICATION
     Dosage: UNK
     Dates: start: 20080101
  6. HUMALOG [Concomitant]
     Indication: DRUG USE FOR UNKNOWN INDICATION
     Dosage: UNK
     Dates: start: 20080101
  7. ALTACE [Concomitant]
     Indication: DRUG USE FOR UNKNOWN INDICATION
     Dosage: UNK
     Dates: start: 20000101
  8. IMODIUM [Concomitant]
     Indication: DRUG USE FOR UNKNOWN INDICATION
     Dosage: UNK
     Dates: start: 20080101
  9. MORPHINE [Concomitant]
     Indication: DRUG USE FOR UNKNOWN INDICATION
     Dosage: UNK
     Dates: start: 20081125
  10. LOMOTIL [Concomitant]
     Indication: DRUG USE FOR UNKNOWN INDICATION
     Dosage: UNK
     Dates: start: 20081117
  11. ASPIRIN [Concomitant]
     Indication: DRUG USE FOR UNKNOWN INDICATION
     Dosage: UNK
     Dates: start: 20081201
  12. PLAVIX [Concomitant]
     Indication: DRUG USE FOR UNKNOWN INDICATION
     Dosage: UNK
     Dates: start: 20090201

REACTIONS (3)
  - GASTROINTESTINAL STOMA COMPLICATION [None]
  - ORTHOSTATIC HYPOTENSION [None]
  - TRANSIENT ISCHAEMIC ATTACK [None]
